FAERS Safety Report 9204181 (Version 2)
Quarter: 2013Q2

REPORT INFORMATION
  Report Type: Report from Study
  Country: RU (occurrence: RU)
  Receive Date: 20130402
  Receipt Date: 20130607
  Transmission Date: 20140414
  Serious: Yes (Other)
  Sender: FDA-Public Use
  Company Number: RU-ASTRAZENECA-2013SE10066

PATIENT
  Age: 24034 Day
  Sex: Male

DRUGS (4)
  1. AZD6140 [Suspect]
     Indication: CORONARY ARTERY DISEASE
     Route: 048
     Dates: start: 20120515
  2. ENALAPRIL [Concomitant]
     Indication: HYPERTENSION
     Route: 048
  3. SIMVASTATINE [Concomitant]
     Indication: ANGINA PECTORIS
     Route: 048
  4. ASA [Concomitant]
     Route: 048

REACTIONS (1)
  - Age-related macular degeneration [Recovered/Resolved]
